FAERS Safety Report 9669483 (Version 2)
Quarter: 2013Q4

REPORT INFORMATION
  Report Type: Spontaneous
  Country: US (occurrence: US)
  Receive Date: 20131105
  Receipt Date: 20131105
  Transmission Date: 20140711
  Serious: Yes (Other)
  Sender: FDA-Public Use
  Company Number: US-RB-059400-13

PATIENT
  Age: 17 Year
  Sex: Female
  Weight: 76 kg

DRUGS (2)
  1. CLEARASIL ULTRA RAPID ACTION SEAL-TO-CLEAR [Suspect]
     Indication: ACNE
     Dosage: USED PEA SIZED AMOUNT ON 05-SEP-2013 MORNING AND NIGHT, PEA SIZED AMOUNT ON 03-OCT-2013
     Route: 061
     Dates: start: 20130905
  2. EPIDUO [Concomitant]

REACTIONS (8)
  - Acne cystic [Not Recovered/Not Resolved]
  - Swelling face [Not Recovered/Not Resolved]
  - Vision blurred [Not Recovered/Not Resolved]
  - Swollen tear duct [Not Recovered/Not Resolved]
  - Pain [Not Recovered/Not Resolved]
  - Paraesthesia [Not Recovered/Not Resolved]
  - Lacrimation increased [Not Recovered/Not Resolved]
  - Condition aggravated [Not Recovered/Not Resolved]
